FAERS Safety Report 8124807-2 (Version None)
Quarter: 2012Q1

REPORT INFORMATION
  Report Type: 
  Country: None (occurrence: None)
  Receive Date: 20120209
  Receipt Date: 20120204
  Transmission Date: 20120608
  Serious: Yes (Hospitalization, Other)
  Sender: FDA-Public Use
  Company Number: AU-SANOFI-AVENTIS-2012SA003645

PATIENT
  Age: 76 Year
  Sex: Female

DRUGS (6)
  1. PLAVIX [Suspect]
     Route: 065
     Dates: start: 20080101
  2. CAPTOPRIL [Concomitant]
  3. CAPTOPRIL [Concomitant]
  4. ESOMEPRAZOLE [Concomitant]
  5. METOPROLOL TARTRATE [Concomitant]
  6. METOPROLOL TARTRATE [Concomitant]

REACTIONS (4)
  - CIRCULATORY COLLAPSE [None]
  - FATIGUE [None]
  - DYSPNOEA [None]
  - OFF LABEL USE [None]
